FAERS Safety Report 4826706-8 (Version None)
Quarter: 2005Q4

REPORT INFORMATION
  Report Type: 
  Country: None (occurrence: None)
  Receive Date: 20051114
  Receipt Date: 20051111
  Transmission Date: 20060501
  Serious: Yes (Death)
  Sender: FDA-Public Use
  Company Number: DE-RB-2313-2005

PATIENT
  Age: 35 Year
  Sex: Female

DRUGS (1)
  1. BUPRENORPHINE HCL [Suspect]
     Dosage: DOSAGE UNKNOWN
     Route: 060

REACTIONS (1)
  - COMPLETED SUICIDE [None]
